FAERS Safety Report 25763829 (Version 1)
Quarter: 2025Q3

REPORT INFORMATION
  Report Type: Spontaneous
  Country: US (occurrence: US)
  Receive Date: 20250905
  Receipt Date: 20250905
  Transmission Date: 20251020
  Serious: No
  Sender: DOMPE FARMACEUTICI
  Company Number: US-FARMAPROD-202411-3988

PATIENT
  Sex: Female

DRUGS (5)
  1. OXERVATE [Suspect]
     Active Substance: CENEGERMIN-BKBJ
     Indication: Neurotrophic keratopathy
     Route: 047
     Dates: start: 20241017
  2. SYSTANE (HYPROMELLOSE 2910 (4000 MPA.S)) [Concomitant]
     Active Substance: HYPROMELLOSE 2910 (4000 MPA.S)
  3. PREDNISOLONE [Concomitant]
     Active Substance: PREDNISOLONE
  4. OFLOXACIN [Concomitant]
     Active Substance: OFLOXACIN
  5. TRAVATAN Z [Concomitant]
     Active Substance: TRAVOPROST

REACTIONS (1)
  - Intentional product misuse [Unknown]
